FAERS Safety Report 5114813-4 (Version None)
Quarter: 2006Q3

REPORT INFORMATION
  Report Type: 
  Country: None (occurrence: None)
  Receive Date: 20060926
  Receipt Date: 20060921
  Transmission Date: 20061208
  Serious: Yes (Other)
  Sender: FDA-Public Use
  Company Number: 2006AP04465

PATIENT
  Age: 78 Year
  Sex: Female

DRUGS (3)
  1. ARIMIDEX [Suspect]
     Indication: BREAST CANCER
     Route: 048
     Dates: start: 20030101, end: 20060901
  2. IPD [Concomitant]
     Route: 048
  3. MEIACT [Concomitant]
     Route: 048

REACTIONS (1)
  - CYSTITIS INTERSTITIAL [None]
